FAERS Safety Report 25220940 (Version 1)
Quarter: 2025Q2

REPORT INFORMATION
  Report Type: Spontaneous
  Country: GR (occurrence: GR)
  Receive Date: 20250421
  Receipt Date: 20250421
  Transmission Date: 20250716
  Serious: Yes (Other)
  Sender: ELI LILLY AND COMPANY
  Company Number: GR-ELI_LILLY_AND_COMPANY-GR202504011928

PATIENT
  Age: 95 Year
  Sex: Female

DRUGS (6)
  1. INSULIN GLARGINE [Suspect]
     Active Substance: INSULIN GLARGINE
     Indication: Diabetes mellitus
     Dosage: 9 U, DAILY
     Route: 065
     Dates: start: 2019
  2. NEXIUM [Concomitant]
     Active Substance: ESOMEPRAZOLE MAGNESIUM
     Indication: Abdominal discomfort
     Dosage: 40 MG, DAILY
  3. DORALIN [Concomitant]
     Indication: Bowel movement irregularity
     Dosage: 40 MG, DAILY
  4. NORVASK [AMLODIPINE] [Concomitant]
     Indication: Pulmonary arterial pressure
     Dosage: 10 MG, DAILY
  5. MOXONIDINE [Concomitant]
     Active Substance: MOXONIDINE
     Indication: Pulmonary arterial pressure
  6. LINAGLIPTIN [Concomitant]
     Active Substance: LINAGLIPTIN
     Indication: Blood glucose abnormal

REACTIONS (2)
  - Blood glucose fluctuation [Not Recovered/Not Resolved]
  - Viral infection [Recovering/Resolving]
